FAERS Safety Report 19563959 (Version 1)
Quarter: 2021Q3

REPORT INFORMATION
  Report Type: Spontaneous
  Country: US (occurrence: US)
  Receive Date: 20210716
  Receipt Date: 20210716
  Transmission Date: 20211014
  Serious: Yes (Death)
  Sender: FDA-Public Use
  Company Number: None

PATIENT
  Sex: Male

DRUGS (3)
  1. PRAVASTATIN, VITAMIN D3, MULTIVITAMIN [Concomitant]
  2. ERLEADA [Suspect]
     Active Substance: APALUTAMIDE
     Indication: PROSTATE CANCER
     Route: 048
     Dates: start: 20200813
  3. TORSEMIDE, ISOSORB DINITRATE, LOSARTAN POTASSIUM, METOPROLOL SUCCINATE [Concomitant]

REACTIONS (1)
  - Death [None]
